FAERS Safety Report 4613170-7 (Version None)
Quarter: 2005Q1

REPORT INFORMATION
  Report Type: 
  Country: None (occurrence: None)
  Receive Date: 20050316
  Receipt Date: 20050225
  Transmission Date: 20050727
  Serious: Yes (Death, Other)
  Sender: FDA-Public Use
  Company Number: USA050291896

PATIENT
  Age: 67 Year
  Sex: Female

DRUGS (1)
  1. ILETIN [Suspect]

REACTIONS (7)
  - BLOOD GLUCOSE DECREASED [None]
  - BLOOD GLUCOSE INCREASED [None]
  - COMA [None]
  - DIABETIC COMPLICATION [None]
  - INCOHERENT [None]
  - MYOCARDIAL INFARCTION [None]
  - NEUROPATHY [None]
